FAERS Safety Report 12309565 (Version 1)
Quarter: 2016Q2

REPORT INFORMATION
  Report Type: Spontaneous
  Country: US (occurrence: None)
  Receive Date: 20160426
  Receipt Date: 20160426
  Transmission Date: 20160815
  Serious: No
  Sender: FDA-Public Use
  Company Number: None

PATIENT
  Age: 22 Year
  Sex: Female

DRUGS (5)
  1. SAM E [Concomitant]
  2. SULFADIAZINE. [Concomitant]
     Active Substance: SULFADIAZINE
  3. MEDROL [Concomitant]
     Active Substance: METHYLPREDNISOLONE
  4. ENBREL [Suspect]
     Active Substance: ETANERCEPT
     Indication: RHEUMATOID ARTHRITIS
     Dosage: 50MG/ML PEN EVERY 5 DAYS
     Route: 058
     Dates: start: 20151016
  5. IRON [Concomitant]
     Active Substance: IRON

REACTIONS (2)
  - Fungal skin infection [None]
  - Rash [None]

NARRATIVE: CASE EVENT DATE: 201604
